FAERS Safety Report 9666336 (Version 2)
Quarter: 2013Q4

REPORT INFORMATION
  Report Type: Spontaneous
  Country: JP (occurrence: JP)
  Receive Date: 20131104
  Receipt Date: 20131104
  Transmission Date: 20140711
  Serious: Yes (Other)
  Sender: FDA-Public Use
  Company Number: JP-TAKEDA-TPA2013A07600

PATIENT
  Age: 67 Year
  Sex: Male

DRUGS (5)
  1. FEBURIC [Suspect]
     Indication: HYPERURICAEMIA
     Dosage: 40 MG, QD
     Route: 048
     Dates: start: 20130117, end: 20130801
  2. ALLELOCK [Suspect]
     Indication: RHINITIS ALLERGIC
     Dosage: 10 MG, QD
     Route: 048
     Dates: start: 20130701, end: 20130801
  3. VERSTATIN [Concomitant]
     Dosage: 300 MG, QD
     Route: 048
     Dates: start: 20130220
  4. MICARDIS [Concomitant]
     Dosage: 40 MG, QD
     Route: 048
     Dates: start: 20120928
  5. FLIVAS [Concomitant]
     Dosage: 25 MG, QD
     Route: 048
     Dates: start: 20120928

REACTIONS (1)
  - Eyelid oedema [Recovered/Resolved]
